FAERS Safety Report 6651041-5 (Version None)
Quarter: 2010Q1

REPORT INFORMATION
  Report Type: 
  Country: None (occurrence: None)
  Receive Date: 20100322
  Receipt Date: 20100305
  Transmission Date: 20100710
  Serious: Yes (Other)
  Sender: FDA-Public Use
  Company Number: AUR-APL-2010-00684

PATIENT
  Age: 59 Year
  Sex: Female

DRUGS (3)
  1. SIMVASTATIN [Suspect]
  2. ATENOLOL (NORMITEN) [Concomitant]
  3. ASPIRIN [Concomitant]

REACTIONS (1)
  - RASH MORBILLIFORM [None]
